FAERS Safety Report 14101991 (Version 3)
Quarter: 2018Q1

REPORT INFORMATION
  Report Type: Spontaneous
  Country: JP (occurrence: JP)
  Receive Date: 20171018
  Receipt Date: 20180104
  Transmission Date: 20180508
  Serious: Yes (Hospitalization)
  Sender: FDA-Public Use
  Company Number: US-ALLERGAN-1759052US

PATIENT
  Age: 35 Year
  Sex: Male

DRUGS (12)
  1. ASENAPINE MALEATE - BP [Suspect]
     Active Substance: ASENAPINE MALEATE
     Indication: SCHIZOPHRENIA
     Dosage: 5 MG, BID
     Route: 060
     Dates: start: 20170912, end: 20170918
  2. ASENAPINE MALEATE - BP [Suspect]
     Active Substance: ASENAPINE MALEATE
     Dosage: 15 MG, UNK
     Route: 060
     Dates: start: 20171003, end: 20171004
  3. RISPERIDONE. [Suspect]
     Active Substance: RISPERIDONE
     Indication: HALLUCINATION
     Dosage: 6 MG, UNK
     Route: 048
  4. LONASEN [Suspect]
     Active Substance: BLONANSERIN
     Indication: HALLUCINATION
     Dosage: 24 MG, UNK
     Route: 048
  5. RISPERIDONE. [Suspect]
     Active Substance: RISPERIDONE
     Indication: DELUSION
     Dosage: 3 MG, UNK
     Route: 048
  6. ASENAPINE MALEATE - BP [Suspect]
     Active Substance: ASENAPINE MALEATE
     Dosage: 10 MG, QD
     Route: 060
     Dates: start: 20170919, end: 20171002
  7. SUVOREXANT. [Concomitant]
     Active Substance: SUVOREXANT
     Dosage: UNK, TABLET
  8. FLUNITRAZEPAM [Concomitant]
     Active Substance: FLUNITRAZEPAM
     Indication: PRODUCT USED FOR UNKNOWN INDICATION
     Route: 065
  9. NITRAZEPAM [Concomitant]
     Active Substance: NITRAZEPAM
     Dosage: UNK
  10. SENNOSIDES. [Concomitant]
     Active Substance: SENNOSIDES
     Dosage: UNK
  11. LONASEN [Suspect]
     Active Substance: BLONANSERIN
     Indication: DELUSION
     Dosage: UNK
     Route: 048
  12. BROTIZOLAM [Concomitant]
     Active Substance: BROTIZOLAM
     Dosage: UNK

REACTIONS (2)
  - Agitation [Recovered/Resolved]
  - Incorrect dose administered [Unknown]
